FAERS Safety Report 22120489 (Version 1)
Quarter: 2023Q1

REPORT INFORMATION
  Report Type: Spontaneous
  Country: CA (occurrence: CA)
  Receive Date: 20230321
  Receipt Date: 20230321
  Transmission Date: 20230418
  Serious: Yes (Hospitalization, Other)
  Sender: FDA-Public Use
  Company Number: CA-002147023-NVSC2023CA059728

PATIENT
  Age: 22 Year
  Sex: Female

DRUGS (5)
  1. TACROLIMUS [Interacting]
     Active Substance: TACROLIMUS
     Indication: Immunosuppression
     Dosage: 11 MG, QD, (EVERY ONE DAY)
     Route: 048
  2. MYCOPHENOLATE MOFETIL [Interacting]
     Active Substance: MYCOPHENOLATE MOFETIL
     Indication: Immunosuppression
     Dosage: UNK
     Route: 065
  3. AZATHIOPRINE [Interacting]
     Active Substance: AZATHIOPRINE
     Indication: Immunosuppression
     Dosage: UNK
     Route: 065
  4. ERYTHROMYCIN [Interacting]
     Active Substance: ERYTHROMYCIN
     Indication: Premature labour
     Dosage: UNK
     Route: 065
  5. PREDNISONE [Interacting]
     Active Substance: PREDNISONE
     Indication: Immunosuppression
     Dosage: 20 MG, QD, (EVERY 1 DAYS)
     Route: 065

REACTIONS (7)
  - Maternal exposure during pregnancy [Unknown]
  - Acute kidney injury [Recovered/Resolved]
  - Drug interaction [Recovered/Resolved]
  - Drug level increased [Recovered/Resolved]
  - Microangiopathic haemolytic anaemia [Recovered/Resolved]
  - Pre-eclampsia [Recovered/Resolved]
  - Thrombotic microangiopathy [Recovered/Resolved]
